FAERS Safety Report 8131735 (Version 3)
Quarter: 2014Q2

REPORT INFORMATION
  Report Type: Spontaneous
  Country: US (occurrence: US)
  Receive Date: 20110912
  Receipt Date: 20140617
  Transmission Date: 20141212
  Serious: Yes (Hospitalization, Other)
  Sender: FDA-Public Use
  Company Number: US-ASTRAZENECA-2010SE33177

PATIENT
  Age: 58 Year
  Sex: Female
  Weight: 76.2 kg

DRUGS (12)
  1. CRESTOR [Suspect]
     Indication: BLOOD CHOLESTEROL ABNORMAL
     Route: 048
     Dates: start: 2004
  2. NEXIUM [Suspect]
     Indication: ULCER
     Route: 048
     Dates: start: 2004
  3. PAXIL [Concomitant]
     Indication: DEPRESSION
     Route: 048
  4. PAXIL [Concomitant]
     Indication: FIBROMYALGIA
     Route: 048
  5. RITALIN [Concomitant]
     Indication: ANXIETY
     Dosage: 40 MG 2 TABS AM
     Route: 048
  6. RITALIN [Concomitant]
     Indication: ANXIETY
     Dosage: 40 MG 1 TAB PM
     Route: 048
  7. VALIUM [Concomitant]
     Indication: SLEEP DISORDER
     Route: 048
  8. CLONAZEPAM [Concomitant]
     Indication: SLEEP DISORDER
     Route: 048
     Dates: start: 2013
  9. AMYTRIPTYLINE [Concomitant]
     Indication: SLEEP DISORDER
     Route: 048
  10. HYDROCHLOROTHIAZIDE [Concomitant]
     Indication: DIURETIC THERAPY
     Route: 048
     Dates: start: 1983
  11. PIZANIDINE [Concomitant]
     Indication: MUSCLE SPASMS
     Dosage: 2 MG TID, PRN
     Route: 048
     Dates: start: 2013
  12. ALCLOMETASONO [Concomitant]
     Indication: PRURIGO
     Route: 061
     Dates: start: 2012

REACTIONS (29)
  - Gastrointestinal haemorrhage [Unknown]
  - Ulcer [Unknown]
  - Fall [Unknown]
  - Arthropathy [Unknown]
  - Cataract nuclear [Unknown]
  - Ulcer haemorrhage [Unknown]
  - Carpal tunnel syndrome [Unknown]
  - Haemorrhoids [Unknown]
  - Upper limb fracture [Unknown]
  - Ill-defined disorder [Unknown]
  - Fibromyalgia [Not Recovered/Not Resolved]
  - Slow speech [Not Recovered/Not Resolved]
  - Feeling jittery [Not Recovered/Not Resolved]
  - Activities of daily living impaired [Not Recovered/Not Resolved]
  - Depression [Not Recovered/Not Resolved]
  - Memory impairment [Unknown]
  - Myalgia [Unknown]
  - Pain in extremity [Unknown]
  - Muscle spasms [Unknown]
  - Pain [Unknown]
  - Abdominal discomfort [Unknown]
  - Facial pain [Unknown]
  - Neurodermatitis [Unknown]
  - Blood cholesterol increased [Unknown]
  - Sleep disorder [Unknown]
  - Dry mouth [Unknown]
  - Retinal tear [Unknown]
  - Trigger finger [Unknown]
  - Drug dose omission [Unknown]
